FAERS Safety Report 7136240-0 (Version None)
Quarter: 2010Q4

REPORT INFORMATION
  Report Type: 
  Country: None (occurrence: None)
  Receive Date: 20101206
  Receipt Date: 20101126
  Transmission Date: 20110411
  Serious: Yes (Disabling)
  Sender: FDA-Public Use
  Company Number: BR-BIOGENIDEC-2010BI041912

PATIENT
  Age: 39 Year
  Sex: Male

DRUGS (6)
  1. AVONEX [Suspect]
     Indication: MULTIPLE SCLEROSIS
     Route: 030
     Dates: start: 20100801
  2. CARBAMAZEPINE [Concomitant]
     Indication: MULTIPLE SCLEROSIS
  3. CLONAZEPAM [Concomitant]
     Indication: DEPRESSION
  4. CITALOPRAM [Concomitant]
     Indication: DEPRESSION
  5. AMITRIPTYLINE [Concomitant]
     Indication: DEPRESSION
  6. OMEPRAZOLE [Concomitant]
     Indication: PROPHYLAXIS

REACTIONS (6)
  - ACCIDENT [None]
  - AMPUTATION [None]
  - INFLUENZA LIKE ILLNESS [None]
  - LEG AMPUTATION [None]
  - MULTIPLE SCLEROSIS RELAPSE [None]
  - PAIN [None]
